FAERS Safety Report 10026109 (Version 1)
Quarter: 2014Q1

REPORT INFORMATION
  Report Type: Spontaneous
  Country: US (occurrence: US)
  Receive Date: 20140320
  Receipt Date: 20140320
  Transmission Date: 20141002
  Serious: Yes (Death)
  Sender: FDA-Public Use
  Company Number: US-GE HEALTHCARE MEDICAL DIAGNOSTICS-OSCN-PR-0809S-0527

PATIENT
  Age: 39 Year
  Sex: Male

DRUGS (11)
  1. OMNISCAN [Suspect]
     Indication: PERIPHERAL ARTERY ANEURYSM
     Route: 042
     Dates: start: 20040407, end: 20040407
  2. OMNISCAN [Suspect]
     Indication: RENAL TRANSPLANT
     Route: 042
     Dates: start: 20040414, end: 20040414
  3. OMNISCAN [Suspect]
     Indication: ABDOMINAL PAIN UPPER
     Route: 042
     Dates: start: 20040513, end: 20040513
  4. OMNISCAN [Suspect]
     Indication: CONGENITAL CYSTIC KIDNEY DISEASE
     Route: 042
     Dates: start: 20040701, end: 20040701
  5. OMNISCAN [Suspect]
     Indication: RENAL CYST
     Route: 042
     Dates: start: 20041119, end: 20041119
  6. OMNISCAN [Suspect]
     Indication: RENAL CYST
     Route: 042
     Dates: start: 20050526, end: 20050526
  7. PROHANCE [Suspect]
     Indication: PRODUCT USED FOR UNKNOWN INDICATION
     Route: 042
     Dates: start: 20020620, end: 20020620
  8. MAGNEVIST [Suspect]
     Indication: PRODUCT USED FOR UNKNOWN INDICATION
     Route: 042
     Dates: start: 19990917, end: 19990917
  9. MAGNEVIST [Suspect]
     Indication: HEADACHE
     Route: 042
     Dates: start: 20060123, end: 20060123
  10. MAGNEVIST [Suspect]
     Indication: RENAL ARTERY STENOSIS
     Route: 042
     Dates: start: 20060502, end: 20060502
  11. EPOGEN [Concomitant]
     Dates: start: 20040901

REACTIONS (1)
  - Nephrogenic systemic fibrosis [Fatal]
